FAERS Safety Report 6575603-9 (Version None)
Quarter: 2010Q1

REPORT INFORMATION
  Report Type: 
  Country: None (occurrence: None)
  Receive Date: 20100209
  Receipt Date: 20100129
  Transmission Date: 20100710
  Serious: Yes (Hospitalization)
  Sender: FDA-Public Use
  Company Number: B0481391A

PATIENT
  Age: 11 Year
  Sex: Female

DRUGS (2)
  1. LAMOTRIGINE [Suspect]
     Dosage: 1MGK PER DAY
     Route: 065
  2. VALPROATE SODIUM [Suspect]
     Indication: EPILEPSY
     Dosage: 40MGK PER DAY
     Route: 065

REACTIONS (31)
  - ANAEMIA [None]
  - ASCITES [None]
  - COAGULOPATHY [None]
  - DRUG INTERACTION [None]
  - DRUG RASH WITH EOSINOPHILIA AND SYSTEMIC SYMPTOMS [None]
  - ERYTHEMA [None]
  - FACE OEDEMA [None]
  - HEPATIC ENZYME INCREASED [None]
  - HEPATOMEGALY [None]
  - HYPOALBUMINAEMIA [None]
  - LEUKOCYTOSIS [None]
  - LYMPH NODE PAIN [None]
  - LYMPHADENOPATHY [None]
  - LYMPHOCYTOSIS [None]
  - NAUSEA [None]
  - NEUROPATHY PERIPHERAL [None]
  - OEDEMA PERIPHERAL [None]
  - PERIORBITAL OEDEMA [None]
  - PLEURAL EFFUSION [None]
  - PROTHROMBIN TIME PROLONGED [None]
  - PYREXIA [None]
  - RALES [None]
  - RASH [None]
  - RASH ERYTHEMATOUS [None]
  - RASH GENERALISED [None]
  - RASH MACULAR [None]
  - RASH PAPULAR [None]
  - TACHYPNOEA [None]
  - THROMBOCYTOPENIA [None]
  - URTICARIA [None]
  - VOMITING [None]
